FAERS Safety Report 5988445-X (Version None)
Quarter: 2008Q4

REPORT INFORMATION
  Report Type: 
  Country: None (occurrence: None)
  Receive Date: 20081210
  Receipt Date: 20081205
  Transmission Date: 20090506
  Serious: Yes (Hospitalization)
  Sender: FDA-Public Use
  Company Number: DE-BRISTOL-MYERS SQUIBB COMPANY-14407688

PATIENT
  Age: 59 Year
  Sex: Male
  Weight: 80 kg

DRUGS (3)
  1. CETUXIMAB [Suspect]
     Indication: NON-SMALL CELL LUNG CANCER
     Dosage: 436 MG DAILY DOSE. RECENT INFUSION ON 28OCT08. INTERRUPTED SINCE 06NOV08;RESTARTED ON 25NOV08
     Route: 042
     Dates: start: 20080725
  2. DOCETAXEL [Suspect]
     Indication: NON-SMALL CELL LUNG CANCER
     Dosage: 145.6 MG DAILY DOSE.RECENT INFUSION ON 30SEP08
     Route: 042
     Dates: start: 20080909, end: 20080930
  3. GEMCITABINE HCL [Suspect]
     Indication: NON-SMALL CELL LUNG CANCER
     Dosage: RECENT INFUSION ON 20AUG08
     Route: 042
     Dates: start: 20080725, end: 20080826

REACTIONS (3)
  - CHEST PAIN [None]
  - PLEURAL EFFUSION [None]
  - PYREXIA [None]
